FAERS Safety Report 21672647 (Version 1)
Quarter: 2022Q4

REPORT INFORMATION
  Report Type: Spontaneous
  Country: AU (occurrence: AU)
  Receive Date: 20221202
  Receipt Date: 20221202
  Transmission Date: 20230112
  Serious: Yes (Other)
  Sender: FDA-Public Use
  Company Number: AU-GENERIC HEALTH PTY. LTD.-2022-14006

PATIENT
  Age: 17 Year
  Sex: Female

DRUGS (9)
  1. RISPERIDONE [Suspect]
     Active Substance: RISPERIDONE
     Indication: Agitation
     Dosage: UNK
     Route: 065
  2. RISPERIDONE [Suspect]
     Active Substance: RISPERIDONE
     Indication: Depression
  3. RISPERIDONE [Suspect]
     Active Substance: RISPERIDONE
     Indication: Aggression
  4. LURASIDONE HYDROCHLORIDE [Suspect]
     Active Substance: LURASIDONE HYDROCHLORIDE
     Indication: Agitation
     Dosage: 40 MG, QD
     Route: 065
  5. LURASIDONE HYDROCHLORIDE [Suspect]
     Active Substance: LURASIDONE HYDROCHLORIDE
     Indication: Depression
     Dosage: 60 MG, QD
     Route: 065
  6. LURASIDONE HYDROCHLORIDE [Suspect]
     Active Substance: LURASIDONE HYDROCHLORIDE
     Indication: Mood swings
  7. CLONIDINE [Concomitant]
     Active Substance: CLONIDINE
     Indication: Depression
     Dosage: UNK
     Route: 065
  8. CLONIDINE [Concomitant]
     Active Substance: CLONIDINE
     Indication: Aggression
  9. CLONIDINE [Concomitant]
     Active Substance: CLONIDINE
     Indication: Agitation

REACTIONS (3)
  - Hyperprolactinaemia [Unknown]
  - Galactorrhoea [Unknown]
  - Off label use [Unknown]
